FAERS Safety Report 13484023 (Version 1)
Quarter: 2017Q2

REPORT INFORMATION
  Report Type: Spontaneous
  Country: US (occurrence: US)
  Receive Date: 20170425
  Receipt Date: 20170425
  Transmission Date: 20170830
  Serious: Yes (Disabling)
  Sender: FDA-Public Use
  Company Number: None

PATIENT
  Age: 8 Year
  Sex: Male
  Weight: 36 kg

DRUGS (3)
  1. MONTELUKAST SOD 5 MG [Suspect]
     Active Substance: MONTELUKAST SODIUM
     Indication: ASTHMA
     Dosage: ?          QUANTITY:30 TABLET(S);?
     Route: 048
     Dates: start: 20161101, end: 20170420
  2. FLINTSTONES MULTI VITAMINS [Concomitant]
  3. MONTELUKAST SOD 5 MG [Suspect]
     Active Substance: MONTELUKAST SODIUM
     Indication: MULTIPLE ALLERGIES
     Dosage: ?          QUANTITY:30 TABLET(S);?
     Route: 048
     Dates: start: 20161101, end: 20170420

REACTIONS (6)
  - Abnormal behaviour [None]
  - Emotional disorder [None]
  - Crying [None]
  - Insomnia [None]
  - Nail picking [None]
  - Feeling abnormal [None]

NARRATIVE: CASE EVENT DATE: 20170404
